FAERS Safety Report 23932726 (Version 1)
Quarter: 2024Q2

REPORT INFORMATION
  Report Type: Spontaneous
  Country: US (occurrence: None)
  Receive Date: 20240601
  Receipt Date: 20240601
  Transmission Date: 20240716
  Serious: Yes (Other)
  Sender: FDA-Public Use
  Company Number: None

PATIENT
  Age: 50 Year
  Sex: Female
  Weight: 83.25 kg

DRUGS (1)
  1. METHYLCOBALAMIN\SEMAGLUTIDE [Suspect]
     Active Substance: METHYLCOBALAMIN\SEMAGLUTIDE
     Indication: Weight decreased
     Dosage: OTHER ROUTE : INJECTION?
     Route: 050
     Dates: start: 20240531, end: 20240601

REACTIONS (4)
  - Vomiting [None]
  - Nausea [None]
  - Headache [None]
  - Feeling abnormal [None]

NARRATIVE: CASE EVENT DATE: 20240531
